FAERS Safety Report 19920026 (Version 1)
Quarter: 2021Q4

REPORT INFORMATION
  Report Type: Spontaneous
  Country: CN (occurrence: CN)
  Receive Date: 20211005
  Receipt Date: 20211005
  Transmission Date: 20220303
  Serious: Yes (Other)
  Sender: FDA-Public Use
  Company Number: CN-SA-2020SA113197

PATIENT
  Age: 28 Year
  Sex: Female

DRUGS (2)
  1. DOCETAXEL [Suspect]
     Active Substance: DOCETAXEL
     Indication: Invasive ductal breast carcinoma
     Dosage: 75 MG/M2 INTRAVENOUS INFUSION FOR 6 CYCLES (21 D WAS 1 CYCLE)
     Route: 042
  2. EPIRUBICIN HYDROCHLORIDE [Suspect]
     Active Substance: EPIRUBICIN HYDROCHLORIDE
     Indication: Invasive ductal breast carcinoma
     Dosage: 60 MG/M2 FOR 6 CYCLES (21 D WAS 1 CYCLE)
     Route: 042

REACTIONS (3)
  - Granulocytopenia [Unknown]
  - Vomiting [Unknown]
  - Nausea [Unknown]
